FAERS Safety Report 9132273 (Version 2)
Quarter: 2013Q1

REPORT INFORMATION
  Report Type: Spontaneous
  Country: US (occurrence: US)
  Receive Date: 20130301
  Receipt Date: 20130307
  Transmission Date: 20140127
  Serious: No
  Sender: FDA-Public Use
  Company Number: US-PFIZER INC-2013073515

PATIENT
  Age: 50 Year
  Sex: Female
  Weight: 68.03 kg

DRUGS (6)
  1. LYRICA [Suspect]
     Indication: FIBROMYALGIA
     Dosage: UNK
     Route: 048
     Dates: start: 201301, end: 201302
  2. ENABLEX [Concomitant]
     Dosage: UNK
  3. IBUPROFEN [Concomitant]
     Dosage: UNK, AS NEEDED
  4. AMLODIPINE [Concomitant]
     Dosage: UNK
  5. METHOCARBAMOL [Concomitant]
     Dosage: UNK
  6. NEXIUM [Concomitant]
     Dosage: UNK

REACTIONS (2)
  - Pain in extremity [Unknown]
  - Pain [Not Recovered/Not Resolved]
